FAERS Safety Report 9922812 (Version 1)
Quarter: 2014Q1

REPORT INFORMATION
  Report Type: Spontaneous
  Country: JP (occurrence: JP)
  Receive Date: 20140225
  Receipt Date: 20140225
  Transmission Date: 20141002
  Serious: Yes (Hospitalization)
  Sender: FDA-Public Use
  Company Number: JP-TAKEDA-2014TJP001771

PATIENT
  Age: 76 Year
  Sex: Female

DRUGS (2)
  1. ACTOS TABLETS 15 [Suspect]
     Indication: SUICIDE ATTEMPT
     Dosage: 600 MG, QD
     Route: 048
  2. METFORMIN HYDROCHLORIDE [Suspect]
     Indication: SUICIDE ATTEMPT
     Dosage: 20000 MG, QD
     Route: 048

REACTIONS (4)
  - Intentional overdose [Unknown]
  - Altered state of consciousness [Unknown]
  - Metabolic acidosis [Recovered/Resolved]
  - Multi-organ failure [Unknown]
